FAERS Safety Report 17995826 (Version 1)
Quarter: 2020Q3

REPORT INFORMATION
  Report Type: Spontaneous
  Country: None (occurrence: US)
  Receive Date: 20200708
  Receipt Date: 20200708
  Transmission Date: 20201103
  Serious: No
  Sender: FDA-Public Use
  Company Number: US-B.BRAUN MEDICAL INC.-2087135

PATIENT
  Age: 58 Year
  Sex: Male

DRUGS (1)
  1. BALANCED SALT [Suspect]
     Active Substance: CALCIUM CHLORIDE\MAGNESIUM CHLORIDE\POTASSIUM CHLORIDE\SODIUM ACETATE\SODIUM CHLORIDE\SODIUM CITRATE
     Route: 037

REACTIONS (1)
  - Anaesthetic complication [Recovering/Resolving]

NARRATIVE: CASE EVENT DATE: 20200608
